FAERS Safety Report 22338937 (Version 2)
Quarter: 2024Q3

REPORT INFORMATION
  Report Type: Report from Study
  Country: IN (occurrence: IN)
  Receive Date: 20230518
  Receipt Date: 20240904
  Transmission Date: 20241017
  Serious: Yes (Other)
  Sender: RANBAXY
  Company Number: IN-SUN PHARMACEUTICAL INDUSTRIES LTD-2023R1-388531

PATIENT
  Sex: Female

DRUGS (2)
  1. DEXMEDETOMIDINE [Suspect]
     Active Substance: DEXMEDETOMIDINE
     Indication: Epidural analgesia
     Dosage: 2 UG/ML
     Route: 008
  2. ROPIVACAINE [Suspect]
     Active Substance: ROPIVACAINE
     Indication: Epidural analgesia
     Dosage: 0.1 PERCENT
     Route: 008

REACTIONS (3)
  - Hypotension [Unknown]
  - Exposure during pregnancy [Unknown]
  - Live birth [Unknown]
